FAERS Safety Report 9841755 (Version 1)
Quarter: 2014Q1

REPORT INFORMATION
  Report Type: Spontaneous
  Country: CA (occurrence: CA)
  Receive Date: 20140124
  Receipt Date: 20140124
  Transmission Date: 20141002
  Serious: Yes (Hospitalization)
  Sender: FDA-Public Use
  Company Number: CA-ASTRAZENECA-2014SE03907

PATIENT
  Age: 33 Year
  Sex: Female

DRUGS (5)
  1. PULMICORT [Suspect]
     Route: 055
  2. DEXAMETHASONE [Suspect]
     Route: 023
  3. PREDNISONE [Suspect]
     Route: 048
  4. SOLU-CORTEF [Suspect]
     Route: 042
  5. SOLU-MEDROL [Suspect]
     Route: 042

REACTIONS (5)
  - Respiratory distress [Unknown]
  - Tremor [Unknown]
  - Type I hypersensitivity [Unknown]
  - Type IV hypersensitivity reaction [Unknown]
  - Bronchospasm [Unknown]
